FAERS Safety Report 6944764-1 (Version None)
Quarter: 2010Q3

REPORT INFORMATION
  Report Type: 
  Country: None (occurrence: None)
  Receive Date: 20100827
  Receipt Date: 20100813
  Transmission Date: 20110219
  Serious: Yes (Hospitalization)
  Sender: FDA-Public Use
  Company Number: US-ELI_LILLY_AND_COMPANY-US201008006035

PATIENT
  Age: 53 Year
  Sex: Female

DRUGS (11)
  1. FORTEO [Suspect]
     Dosage: 20 UG, DAILY (1/D)
  2. COUMADIN [Concomitant]
  3. TRAZODONE HCL [Concomitant]
  4. VITAMIN D [Concomitant]
  5. CALCIUM [Concomitant]
  6. LORAZEPAM [Concomitant]
  7. TYLENOL (CAPLET) [Concomitant]
  8. NUCYNTA [Concomitant]
  9. PHENERGAN [Concomitant]
  10. CHEMOTHERAPEUTICS [Concomitant]
  11. CORTICOSTEROIDS [Concomitant]

REACTIONS (6)
  - BLOOD GLUCOSE INCREASED [None]
  - GENERAL PHYSICAL HEALTH DETERIORATION [None]
  - MUSCULAR WEAKNESS [None]
  - OEDEMA PERIPHERAL [None]
  - POST PROCEDURAL HAEMORRHAGE [None]
  - SKIN LACERATION [None]
